FAERS Safety Report 25202166 (Version 5)
Quarter: 2025Q3

REPORT INFORMATION
  Report Type: Report from Study
  Country: IN (occurrence: IN)
  Receive Date: 20250416
  Receipt Date: 20250923
  Transmission Date: 20251021
  Serious: Yes (Other)
  Sender: NOVARTIS
  Company Number: IN-002147023-NVSC2024IN147430

PATIENT
  Age: 64 Year
  Sex: Female
  Weight: 56.4 kg

DRUGS (9)
  1. RIBOCICLIB [Suspect]
     Active Substance: RIBOCICLIB
     Indication: Breast cancer
     Dosage: 400 MG, QD
     Route: 048
     Dates: start: 20230508
  2. RIBOCICLIB [Suspect]
     Active Substance: RIBOCICLIB
     Indication: Hormone receptor positive HER2 negative breast cancer
     Dosage: 200MG,ONE DAY ALTERNATING WITH 400 MG NEXT DAY, ONCE DAILY X 3 WEEKS F/B 1 WEEK GAP
     Route: 048
  3. RIBOCICLIB [Suspect]
     Active Substance: RIBOCICLIB
     Indication: Breast cancer metastatic
     Route: 048
     Dates: start: 20240410
  4. RIBOCICLIB [Suspect]
     Active Substance: RIBOCICLIB
     Route: 048
  5. RIBOCICLIB [Suspect]
     Active Substance: RIBOCICLIB
     Route: 048
  6. RIBOCICLIB [Suspect]
     Active Substance: RIBOCICLIB
     Dosage: 200 MG ONE DAY ALTERNATING WITH 400 MG NEXT DAY ONCE DAILY
     Route: 065
  7. FULVESTRANT [Concomitant]
     Active Substance: FULVESTRANT
     Indication: Product used for unknown indication
     Route: 065
  8. FULVESTRANT [Concomitant]
     Active Substance: FULVESTRANT
     Route: 065
     Dates: start: 20230524
  9. FULVESTRANT [Concomitant]
     Active Substance: FULVESTRANT
     Route: 065
     Dates: start: 20230607

REACTIONS (20)
  - Breast cancer metastatic [Unknown]
  - Malignant neoplasm progression [Unknown]
  - Cerebral atrophy [Unknown]
  - Fatigue [Recovered/Resolved]
  - Fatigue [Unknown]
  - Asthenia [Recovered/Resolved]
  - Pain [Recovered/Resolved]
  - Dengue fever [Unknown]
  - Depression [Unknown]
  - Injection site induration [Unknown]
  - Asthenia [Unknown]
  - Pain [Unknown]
  - Neutrophil count abnormal [Unknown]
  - Blood thyroid stimulating hormone abnormal [Unknown]
  - Blood pressure abnormal [Unknown]
  - Vertigo [Unknown]
  - Lymphadenopathy mediastinal [Unknown]
  - White matter lesion [Unknown]
  - Eastern Cooperative Oncology Group performance status abnormal [Unknown]
  - Off label use [Unknown]

NARRATIVE: CASE EVENT DATE: 20230524
